FAERS Safety Report 5378315-2 (Version None)
Quarter: 2007Q3

REPORT INFORMATION
  Report Type: 
  Country: None (occurrence: None)
  Receive Date: 20070705
  Receipt Date: 20070625
  Transmission Date: 20080115
  Serious: Yes (Hospitalization)
  Sender: FDA-Public Use
  Company Number: GB-NOVOPROD-264459

PATIENT
  Sex: Female
  Weight: 88.889 kg

DRUGS (1)
  1. NOVOLOG MIX 70/30 [Suspect]
     Indication: DIABETES MELLITUS
     Dosage: 42+22 IU, QD
     Route: 058
     Dates: start: 20070611, end: 20070611

REACTIONS (2)
  - DYSPNOEA [None]
  - FACE OEDEMA [None]
